FAERS Safety Report 24675304 (Version 1)
Quarter: 2024Q4

REPORT INFORMATION
  Report Type: Report from Study
  Country: DE (occurrence: DE)
  Receive Date: 20241128
  Receipt Date: 20241128
  Transmission Date: 20250114
  Serious: Yes (Death, Hospitalization, Other)
  Sender: ROCHE
  Company Number: DE-ROCHE-2301366

PATIENT
  Age: 43 Year
  Sex: Female
  Weight: 105.0 kg

DRUGS (20)
  1. OCREVUS [Suspect]
     Active Substance: OCRELIZUMAB
     Indication: Primary progressive multiple sclerosis
     Route: 042
     Dates: start: 20180613
  2. OCREVUS [Suspect]
     Active Substance: OCRELIZUMAB
     Route: 042
     Dates: start: 20181226
  3. OCREVUS [Suspect]
     Active Substance: OCRELIZUMAB
     Route: 042
     Dates: start: 20210713
  4. OCREVUS [Suspect]
     Active Substance: OCRELIZUMAB
     Route: 042
  5. DALFAMPRIDINE [Concomitant]
     Active Substance: DALFAMPRIDINE
  6. PREGABALIN [Concomitant]
     Active Substance: PREGABALIN
     Dosage: 150 MG-0-100 MG
  7. PREGABALIN [Concomitant]
     Active Substance: PREGABALIN
  8. PREGABALIN [Concomitant]
     Active Substance: PREGABALIN
  9. PREGABALIN [Concomitant]
     Active Substance: PREGABALIN
     Dosage: (1-3-3)
  10. NITROFURANTOIN [Concomitant]
     Active Substance: NITROFURANTOIN
     Dosage: 0-0-1
  11. ESOMEPRAZOLE [Concomitant]
     Active Substance: ESOMEPRAZOLE
  12. TIZANIDINE [Concomitant]
     Active Substance: TIZANIDINE
  13. TIZANIDINE [Concomitant]
     Active Substance: TIZANIDINE
     Dosage: (1-1-1)
  14. CHOLECALCIFEROL [Concomitant]
     Active Substance: CHOLECALCIFEROL
  15. CHOLECALCIFEROL [Concomitant]
     Active Substance: CHOLECALCIFEROL
  16. CHOLECALCIFEROL [Concomitant]
     Active Substance: CHOLECALCIFEROL
  17. BOTOX [Concomitant]
     Active Substance: ONABOTULINUMTOXINA
     Dosage: IN THE BLADDER?EVERY 10-12 MONTHS
  18. ACIMOL (GERMANY) [Concomitant]
  19. ESOMEPRAZOLE [Concomitant]
     Active Substance: ESOMEPRAZOLE
     Dosage: (1-0-0)
  20. NOVALGIN (METAMIZOLE SODIUM) [Concomitant]
     Active Substance: METAMIZOLE SODIUM
     Dosage: (2-0-2) AS NEEDED

REACTIONS (26)
  - Psoriasis [Not Recovered/Not Resolved]
  - Increased upper airway secretion [Not Recovered/Not Resolved]
  - Fall [Unknown]
  - Ligament rupture [Recovered/Resolved]
  - Bone fissure [Recovered/Resolved]
  - Osteorrhagia [Recovered/Resolved]
  - Weight increased [Not Recovered/Not Resolved]
  - Chills [Recovered/Resolved]
  - Headache [Recovered/Resolved]
  - Nausea [Recovered/Resolved]
  - Diarrhoea [Recovered/Resolved]
  - Hypotension [Recovered/Resolved]
  - Cystitis interstitial [Not Recovered/Not Resolved]
  - SARS-CoV-2 antibody test negative [Recovered/Resolved]
  - Sinusitis [Not Recovered/Not Resolved]
  - C-reactive protein increased [Recovering/Resolving]
  - White blood cell count increased [Recovered/Resolved]
  - Dry skin [Unknown]
  - Menopause [Recovering/Resolving]
  - Gait disturbance [Not Recovered/Not Resolved]
  - Multiple sclerosis [Not Recovered/Not Resolved]
  - Blood creatine phosphokinase increased [Not Recovered/Not Resolved]
  - Nasopharyngitis [Recovered/Resolved]
  - Stress [Not Recovered/Not Resolved]
  - COVID-19 [Fatal]
  - Cardiac failure [Fatal]

NARRATIVE: CASE EVENT DATE: 20180613
